FAERS Safety Report 11435722 (Version 3)
Quarter: 2015Q4

REPORT INFORMATION
  Report Type: Report from Study
  Country: KR (occurrence: KR)
  Receive Date: 20150831
  Receipt Date: 20151007
  Transmission Date: 20160304
  Serious: Yes (Death, Hospitalization)
  Sender: FDA-Public Use
  Company Number: KR-SA-2015SA127485

PATIENT
  Age: 52 Year
  Sex: Male
  Weight: 50 kg

DRUGS (8)
  1. TAS-118 [Suspect]
     Active Substance: INVESTIGATIONAL PRODUCT
     Indication: GASTRIC CANCER
     Route: 048
     Dates: start: 20150410, end: 20150416
  2. PANTO [Concomitant]
     Active Substance: PANTOPRAZOLE SODIUM
     Dosage: PANTO-A
     Route: 048
     Dates: start: 1990
  3. LIDOCAINE. [Concomitant]
     Active Substance: LIDOCAINE
     Dosage: MOUTHWASH?LIDOCAINE GARGLE
     Dates: start: 20150724, end: 20150815
  4. CRAVIT [Concomitant]
     Active Substance: LEVOFLOXACIN
     Dosage: FORM: 750 MG
     Dates: start: 20150810, end: 20150817
  5. AD-MUC [Concomitant]
     Dosage: EXTRAFORMULATION
     Dates: start: 20150724, end: 20150815
  6. ELPLAT [Suspect]
     Active Substance: OXALIPLATIN
     Indication: GASTRIC CANCER
     Route: 042
     Dates: start: 20150410, end: 20150724
  7. TAS-118 [Suspect]
     Active Substance: INVESTIGATIONAL PRODUCT
     Indication: GASTRIC CANCER
     Route: 048
     Dates: start: 20150724, end: 20150730
  8. SODIUM BICARBONATE. [Concomitant]
     Active Substance: SODIUM BICARBONATE
     Dosage: MOUTHWASH
     Dates: start: 20150410

REACTIONS (2)
  - Disease progression [Fatal]
  - Pleural effusion [Not Recovered/Not Resolved]

NARRATIVE: CASE EVENT DATE: 20150818
